FAERS Safety Report 13706227 (Version 4)
Quarter: 2020Q1

REPORT INFORMATION
  Report Type: Spontaneous
  Country: US (occurrence: US)
  Receive Date: 20170630
  Receipt Date: 20200227
  Transmission Date: 20200409
  Serious: Yes (Hospitalization)
  Sender: FDA-Public Use
  Company Number: US-PFIZER INC-2017281131

PATIENT
  Age: 73 Year
  Sex: Female

DRUGS (1)
  1. ALPRAZOLAM. [Suspect]
     Active Substance: ALPRAZOLAM
     Dosage: 1 MG, UNK

REACTIONS (5)
  - Therapeutic response changed [Unknown]
  - Hypersensitivity [Unknown]
  - Nervousness [Unknown]
  - Drug ineffective [Unknown]
  - Tremor [Unknown]
